FAERS Safety Report 8608257-8 (Version None)
Quarter: 2012Q3

REPORT INFORMATION
  Report Type: 
  Country: None (occurrence: None)
  Receive Date: 20120809
  Receipt Date: 20120809
  Transmission Date: 20120928
  Serious: Yes (Disabling)
  Sender: FDA-Public Use
  Company Number: None

PATIENT
  Sex: Female

DRUGS (2)
  1. DILTIAZEM [Suspect]
     Indication: HYPERTENSION
     Dosage: 180MG ORAL DURING SAME TIME
     Route: 048
  2. SIMVASTATIN [Suspect]
     Indication: BLOOD CHOLESTEROL INCREASED
     Dosage: 40MG ORAL
     Route: 048
     Dates: start: 20120224

REACTIONS (3)
  - OVERDOSE [None]
  - RHABDOMYOLYSIS [None]
  - DRUG INTERACTION [None]
